FAERS Safety Report 9630277 (Version 2)
Quarter: 2013Q4

REPORT INFORMATION
  Report Type: Spontaneous
  Country: US (occurrence: US)
  Receive Date: 20131017
  Receipt Date: 20131017
  Transmission Date: 20140711
  Serious: Yes (Other)
  Sender: FDA-Public Use
  Company Number: US-PFIZER INC-2012182714

PATIENT
  Age: 79 Year
  Sex: Female
  Weight: 45.35 kg

DRUGS (5)
  1. DILANTIN-125 [Suspect]
     Indication: CONVULSION
     Dosage: 230 MG,DAILY
     Dates: start: 1970
  2. KEPPRA [Suspect]
     Indication: CONVULSION
     Dosage: 500 MG, 2X/DAY
  3. RANIBIZUMAB [Suspect]
     Indication: MACULAR DEGENERATION
     Dosage: 1 MG, UNK
     Dates: start: 2012
  4. AFLIBERCEPT [Suspect]
     Indication: MACULAR DEGENERATION
     Dosage: UNK
     Dates: start: 201207
  5. SYNTHROID [Concomitant]
     Indication: THYROIDECTOMY
     Dosage: 200 UG, UNK

REACTIONS (3)
  - Drug ineffective [Recovered/Resolved]
  - Macular degeneration [Unknown]
  - Pain [Unknown]
